FAERS Safety Report 6874675-1 (Version None)
Quarter: 2010Q3

REPORT INFORMATION
  Report Type: 
  Country: None (occurrence: None)
  Receive Date: 20100722
  Receipt Date: 20100714
  Transmission Date: 20110219
  Serious: No
  Sender: FDA-Public Use
  Company Number: 004502

PATIENT
  Sex: Female
  Weight: 88.4 kg

DRUGS (11)
  1. KEPPRA [Suspect]
     Indication: CONVULSION
     Dosage: SEE IMAGE
     Route: 048
     Dates: start: 20091221, end: 20091221
  2. KEPPRA [Suspect]
     Indication: CONVULSION
     Dosage: SEE IMAGE
     Route: 048
     Dates: start: 20091222, end: 20091223
  3. KEPPRA [Suspect]
     Indication: CONVULSION
     Dosage: SEE IMAGE
     Route: 048
     Dates: start: 20100201, end: 20100301
  4. KEPPRA [Suspect]
     Indication: CONVULSION
     Dosage: SEE IMAGE
     Route: 048
     Dates: end: 20100609
  5. KEPPRA [Suspect]
     Indication: CONVULSION
     Dosage: SEE IMAGE
     Route: 048
     Dates: start: 20091201
  6. KEPPRA [Suspect]
     Indication: CONVULSION
     Dosage: SEE IMAGE
     Route: 048
     Dates: start: 20100201
  7. KEPPRA [Suspect]
     Indication: CONVULSION
     Dosage: SEE IMAGE
     Route: 048
     Dates: start: 20100204
  8. LORTAB [Concomitant]
  9. SULFAMETHIZOL [Concomitant]
  10. MOBIC [Concomitant]
  11. MAXALT [Concomitant]

REACTIONS (9)
  - CHEST DISCOMFORT [None]
  - CHEST PAIN [None]
  - DIZZINESS [None]
  - DRUG DOSE OMISSION [None]
  - DYSPNOEA [None]
  - INITIAL INSOMNIA [None]
  - NERVOUSNESS [None]
  - VISION BLURRED [None]
  - WEIGHT DECREASED [None]
